FAERS Safety Report 19569733 (Version 1)
Quarter: 2021Q3

REPORT INFORMATION
  Report Type: Spontaneous
  Country: ES (occurrence: ES)
  Receive Date: 20210716
  Receipt Date: 20210716
  Transmission Date: 20211014
  Serious: Yes (Life-Threatening, Hospitalization)
  Sender: FDA-Public Use
  Company Number: ES-TEVA-2021-ES-1932127

PATIENT
  Age: 58 Year
  Sex: Male

DRUGS (4)
  1. VINBLASTINA (807A) [Suspect]
     Active Substance: VINBLASTINE
     Indication: HODGKIN^S DISEASE
     Dosage: 1ST DOSE OF ABVD ON 02/05/21. 2ND ABVD WITH DOSE ADJUSTMENT ON 03/05/2021
     Route: 042
     Dates: start: 20210205, end: 20210305
  2. DACARBAZINA (171A) [Suspect]
     Active Substance: DACARBAZINE
     Indication: HODGKIN^S DISEASE
     Dosage: 1ST DOSE OF ABVD ON 02/05/21. 2ND ABVD WITH DOSE ADJUSTMENT ON 03/05/2021
     Route: 042
     Dates: start: 20210205, end: 20210305
  3. BLEOMICINA (68A) [Suspect]
     Active Substance: BLEOMYCIN SULFATE
     Indication: HODGKIN^S DISEASE
     Dosage: 1ST DOSE OF ABVD ON 02/05/21. 2ND ABVD WITH DOSE ADJUSTMENT ON 03/05/2021
     Route: 042
     Dates: start: 20210205, end: 20210305
  4. DOXORUBICINA (202A) [Suspect]
     Active Substance: DOXORUBICIN HYDROCHLORIDE
     Indication: HODGKIN^S DISEASE
     Dosage: 1ST DOSE OF ABVD ON 02/05/21. RECEIVES 2ND ABVD WITH DOSE ADJUSTMENT ON 03/05.
     Route: 042
     Dates: start: 20210205, end: 20210305

REACTIONS (2)
  - Febrile neutropenia [Recovered/Resolved]
  - Mucosal inflammation [Recovered/Resolved]

NARRATIVE: CASE EVENT DATE: 20210314
